FAERS Safety Report 25998405 (Version 2)
Quarter: 2025Q4

REPORT INFORMATION
  Report Type: Report from Study
  Country: US (occurrence: US)
  Receive Date: 20251105
  Receipt Date: 20251222
  Transmission Date: 20260117
  Serious: Yes (Hospitalization)
  Sender: TAKEDA
  Company Number: US-TAKEDA-2025TUS082059

PATIENT
  Age: 70 Year
  Sex: Male

DRUGS (3)
  1. MARIBAVIR [Suspect]
     Active Substance: MARIBAVIR
     Indication: Acute myeloid leukaemia
     Dosage: UNK UNK, BID
     Dates: start: 20250704
  2. MARIBAVIR [Suspect]
     Active Substance: MARIBAVIR
     Indication: Bone marrow transplant
     Dosage: UNK UNK, BID
  3. MARIBAVIR [Suspect]
     Active Substance: MARIBAVIR
     Dosage: UNK UNK, BID

REACTIONS (2)
  - Pyrexia [Unknown]
  - Chest pain [Unknown]
